FAERS Safety Report 19392576 (Version 1)
Quarter: 2021Q2

REPORT INFORMATION
  Report Type: Report from Study
  Country: None (occurrence: US)
  Receive Date: 20210609
  Receipt Date: 20210609
  Transmission Date: 20210717
  Serious: Yes (Other)
  Sender: FDA-Public Use
  Company Number: US-ABBVIE-21K-163-3937263-00

PATIENT
  Sex: Female

DRUGS (1)
  1. HUMIRA [Suspect]
     Active Substance: ADALIMUMAB
     Indication: HIDRADENITIS
     Route: 058
     Dates: start: 20210426

REACTIONS (9)
  - Skin haemorrhage [Not Recovered/Not Resolved]
  - Diabetes mellitus [Unknown]
  - Sexual dysfunction [Unknown]
  - Weight decreased [Unknown]
  - Flushing [Unknown]
  - Dizziness [Unknown]
  - Dental operation [Unknown]
  - Hypophagia [Unknown]
  - Hidradenitis [Recovering/Resolving]

NARRATIVE: CASE EVENT DATE: 2021
